FAERS Safety Report 6770063-7 (Version None)
Quarter: 2010Q2

REPORT INFORMATION
  Report Type: 
  Country: None (occurrence: None)
  Receive Date: 20100615
  Receipt Date: 20100607
  Transmission Date: 20101027
  Serious: Yes (Hospitalization)
  Sender: FDA-Public Use
  Company Number: GXKR2010DK06197

PATIENT
  Sex: Male

DRUGS (1)
  1. MANDOLGIN (NGX) [Suspect]
     Indication: DIARRHOEA HAEMORRHAGIC
     Dates: start: 20080708

REACTIONS (6)
  - CARDIAC ARREST [None]
  - HYPOACUSIS [None]
  - LETHARGY [None]
  - OROPHARYNGEAL SWELLING [None]
  - RESPIRATORY FAILURE [None]
  - UNRESPONSIVE TO STIMULI [None]
